FAERS Safety Report 5166687-3 (Version None)
Quarter: 2006Q4

REPORT INFORMATION
  Report Type: 
  Country: None (occurrence: None)
  Receive Date: 20061207
  Receipt Date: 20061103
  Transmission Date: 20070319
  Serious: Yes (Disabling)
  Sender: FDA-Public Use
  Company Number: AU-AVENTIS-200621617GDDC

PATIENT
  Age: 53 Year
  Sex: Male

DRUGS (4)
  1. LANTUS [Suspect]
     Route: 058
     Dates: start: 20061019
  2. RENITEC PLUS [Concomitant]
     Indication: HYPERTENSION
     Dosage: DOSE: 20/6
     Route: 048
  3. ATACAND [Concomitant]
     Indication: HYPERTENSION
     Route: 048
  4. LIPITOR [Concomitant]
     Route: 048

REACTIONS (2)
  - ABNORMAL FAECES [None]
  - MUSCLE SPASMS [None]
